FAERS Safety Report 7275229-8 (Version None)
Quarter: 2011Q1

REPORT INFORMATION
  Report Type: 
  Country: None (occurrence: None)
  Receive Date: 20110204
  Receipt Date: 20110127
  Transmission Date: 20110831
  Serious: Yes (Death)
  Sender: FDA-Public Use
  Company Number: PHHY2011BR07920

PATIENT
  Age: 90 Year
  Sex: Female

DRUGS (1)
  1. FORASEQ [Suspect]

REACTIONS (1)
  - EMPHYSEMA [None]
